FAERS Safety Report 5196517-5 (Version None)
Quarter: 2006Q4

REPORT INFORMATION
  Report Type: 
  Country: None (occurrence: None)
  Receive Date: 20061227
  Receipt Date: 20061221
  Transmission Date: 20070319
  Serious: Yes (Death)
  Sender: FDA-Public Use
  Company Number: 430015E06ITA

PATIENT
  Age: 75 Year
  Sex: Male

DRUGS (4)
  1. NOVANTRONE [Suspect]
     Dosage: 12.5 MG, UNKNOWN
     Dates: start: 20061007, end: 20061011
  2. CYTARABINE [Suspect]
     Dosage: 180 MG, 1 IN 1 DAYS, UNKNOWN
     Dates: start: 20061007, end: 20061013
  3. ETOPOSIDE /005119017/ [Suspect]
     Dosage: 180 MG, 1 IN 1 DAYS, UNKNOWN
     Dates: start: 20061007, end: 20061009
  4. BACTRIM [Concomitant]

REACTIONS (3)
  - ACUTE MYOCARDIAL INFARCTION [None]
  - APLASIA [None]
  - CARDIO-RESPIRATORY ARREST [None]
